FAERS Safety Report 26171512 (Version 2)
Quarter: 2025Q4

REPORT INFORMATION
  Report Type: Spontaneous
  Country: US (occurrence: US)
  Receive Date: 20251217
  Receipt Date: 20251218
  Transmission Date: 20260119
  Serious: No
  Sender: NOVARTIS
  Company Number: US-002147023-NVSC2025US192339

PATIENT
  Sex: Male

DRUGS (1)
  1. COSENTYX [Suspect]
     Active Substance: SECUKINUMAB
     Indication: Product used for unknown indication
     Dosage: UNK,( 300MG/2ML) QW
     Route: 065

REACTIONS (3)
  - Device leakage [Unknown]
  - Accidental exposure to product [Unknown]
  - Product storage error [Unknown]
